FAERS Safety Report 9160406 (Version 1)
Quarter: 2013Q1

REPORT INFORMATION
  Report Type: Spontaneous
  Country: CN (occurrence: CN)
  Receive Date: 20130313
  Receipt Date: 20130313
  Transmission Date: 20140127
  Serious: Yes (Other)
  Sender: FDA-Public Use
  Company Number: CN-ASTRAZENECA-2013SE14263

PATIENT
  Age: 38 Year
  Sex: Female

DRUGS (2)
  1. NEXIUM [Suspect]
     Route: 048
     Dates: start: 20120225, end: 20130227
  2. NEXIUM [Suspect]
     Route: 048

REACTIONS (6)
  - Chromaturia [Recovered/Resolved]
  - Jaundice [Recovered/Resolved]
  - Hepatic function abnormal [Unknown]
  - Transaminases increased [Recovered/Resolved]
  - Pruritus [Not Recovered/Not Resolved]
  - Insomnia [Unknown]
